FAERS Safety Report 12967935 (Version 1)
Quarter: 2016Q4

REPORT INFORMATION
  Report Type: Spontaneous
  Country: US (occurrence: US)
  Receive Date: 20161122
  Receipt Date: 20161122
  Transmission Date: 20170207
  Serious: Yes (Other)
  Sender: FDA-Public Use
  Company Number: None

PATIENT
  Age: 39 Year
  Sex: Female
  Weight: 54.9 kg

DRUGS (6)
  1. BOTOX COSMETIC [Suspect]
     Active Substance: ONABOTULINUMTOXINA
     Indication: SKIN WRINKLING
     Route: 030
     Dates: start: 20161121, end: 20161121
  2. ZYRTEC [Concomitant]
     Active Substance: CETIRIZINE HYDROCHLORIDE
  3. ALVESCO [Concomitant]
     Active Substance: CICLESONIDE
  4. SINGULAIR [Concomitant]
     Active Substance: MONTELUKAST SODIUM
  5. MULTI VITAMIN [Concomitant]
     Active Substance: VITAMINS
  6. VITAMIN B12 [Concomitant]
     Active Substance: CYANOCOBALAMIN

REACTIONS (9)
  - Dyspnoea [None]
  - Headache [None]
  - Nausea [None]
  - Muscular weakness [None]
  - Dizziness [None]
  - Diarrhoea [None]
  - Influenza like illness [None]
  - Abdominal discomfort [None]
  - Malaise [None]

NARRATIVE: CASE EVENT DATE: 20161121
